FAERS Safety Report 4522239-7 (Version None)
Quarter: 2005Q1

REPORT INFORMATION
  Report Type: 
  Country: None (occurrence: None)
  Receive Date: 20041207
  Receipt Date: 20041129
  Transmission Date: 20050727
  Serious: No
  Sender: FDA-Public Use
  Company Number: 2004101111

PATIENT
  Sex: Male

DRUGS (1)
  1. CAVERJECT [Suspect]
     Indication: ILL-DEFINED DISORDER

REACTIONS (3)
  - DEVICE FAILURE [None]
  - PENILE PAIN [None]
  - PHARMACEUTICAL PRODUCT COMPLAINT [None]
